FAERS Safety Report 8436934-0 (Version None)
Quarter: 2012Q2

REPORT INFORMATION
  Report Type: 
  Country: None (occurrence: None)
  Receive Date: 20120614
  Receipt Date: 20120124
  Transmission Date: 20120825
  Serious: No
  Sender: FDA-Public Use
  Company Number: US-AMGEN-USASP2012004992

PATIENT
  Age: 81 Year
  Sex: Female

DRUGS (1)
  1. ARANESP [Suspect]
     Indication: HAEMOLYTIC ANAEMIA
     Dosage: 300 MUG, UNK
     Dates: start: 20100101

REACTIONS (3)
  - ANAEMIA [None]
  - MUSCLE SPASMS [None]
  - CHEST PAIN [None]
